FAERS Safety Report 14322766 (Version 1)
Quarter: 2017Q4

REPORT INFORMATION
  Report Type: Report from Study
  Country: US (occurrence: US)
  Receive Date: 20171225
  Receipt Date: 20171225
  Transmission Date: 20180321
  Serious: Yes (Death)
  Sender: FDA-Public Use
  Company Number: PHEH2017US041078

PATIENT
  Sex: Male

DRUGS (1)
  1. RYDAPT [Suspect]
     Active Substance: MIDOSTAURIN
     Indication: MALIGNANT MAST CELL NEOPLASM
     Dosage: 25 MG, QID
     Route: 048

REACTIONS (2)
  - Inappropriate schedule of drug administration [Unknown]
  - Death [Fatal]
